FAERS Safety Report 16451770 (Version 2)
Quarter: 2019Q2

REPORT INFORMATION
  Report Type: Spontaneous
  Country: ZA (occurrence: ZA)
  Receive Date: 20190619
  Receipt Date: 20190619
  Transmission Date: 20190711
  Serious: Yes (Other)
  Sender: FDA-Public Use
  Company Number: PHHY2019ZA138890

PATIENT
  Age: 51 Year
  Sex: Male

DRUGS (11)
  1. LINEZOLID. [Suspect]
     Active Substance: LINEZOLID
     Indication: PULMONARY TUBERCULOSIS
     Dosage: 600 MG, QD
     Route: 048
     Dates: start: 20190213
  2. PYRAZINAMIDE. [Suspect]
     Active Substance: PYRAZINAMIDE
     Indication: PULMONARY TUBERCULOSIS
     Dosage: 2 G, QD
     Route: 048
     Dates: start: 20190213
  3. BEDAQUILINE [Suspect]
     Active Substance: BEDAQUILINE
     Indication: PULMONARY TUBERCULOSIS
     Dosage: 200 MG, TIW
     Route: 048
     Dates: start: 20190213
  4. CO-AMOXICLAV [Suspect]
     Active Substance: AMOXICILLIN\CLAVULANATE POTASSIUM
     Indication: PULMONARY TUBERCULOSIS
     Dosage: 375 MG, TID
     Route: 048
     Dates: start: 20190412
  5. ISONIAZID. [Suspect]
     Active Substance: ISONIAZID
     Indication: PULMONARY TUBERCULOSIS
     Dosage: 900 MG, QD
     Route: 048
     Dates: start: 20190213
  6. MEROPENEM. [Suspect]
     Active Substance: MEROPENEM
     Indication: PULMONARY TUBERCULOSIS
     Dosage: 1 G, TID
     Route: 042
     Dates: start: 20190412
  7. PYRIDOXINE [Concomitant]
     Active Substance: PYRIDOXINE
     Indication: PRODUCT USED FOR UNKNOWN INDICATION
     Dosage: UNK
     Route: 065
  8. PAS [Suspect]
     Active Substance: AMINOSALICYLIC ACID
     Indication: PULMONARY TUBERCULOSIS
     Dosage: 8 G, QD
     Route: 048
     Dates: start: 20190213
  9. CLOFAZIMINE [Suspect]
     Active Substance: CLOFAZIMINE
     Indication: PULMONARY TUBERCULOSIS
     Dosage: 100 MG, QD
     Route: 048
     Dates: start: 20190213
  10. DELAMANID [Suspect]
     Active Substance: DELAMANID
     Indication: PULMONARY TUBERCULOSIS
     Dosage: 100 MG, BID
     Route: 048
     Dates: start: 20190213
  11. TERIZIDONE [Suspect]
     Active Substance: TERIZIDONE
     Indication: PULMONARY TUBERCULOSIS
     Dosage: 750 MG, QD
     Route: 048
     Dates: start: 20190213

REACTIONS (10)
  - Pancreatitis chronic [Unknown]
  - Hepatitis B [Unknown]
  - Jaundice cholestatic [Not Recovered/Not Resolved]
  - Hepatitis A [Unknown]
  - Platelet count increased [Unknown]
  - Vomiting [Unknown]
  - Blood sodium decreased [Unknown]
  - Blood potassium increased [Unknown]
  - Abdominal pain upper [Unknown]
  - Monocyte count increased [Unknown]

NARRATIVE: CASE EVENT DATE: 20190517
